FAERS Safety Report 23020471 (Version 1)
Quarter: 2023Q4

REPORT INFORMATION
  Report Type: Spontaneous
  Country: None (occurrence: US)
  Receive Date: 20231003
  Receipt Date: 20231003
  Transmission Date: 20240110
  Serious: No
  Sender: FDA-Public Use
  Company Number: US-Armstrong Pharmaceuticals, Inc.-2146620

PATIENT
  Sex: Male

DRUGS (2)
  1. PRIMATENE MIST [Suspect]
     Active Substance: EPINEPHRINE
     Indication: Wheezing
     Route: 055
  2. VICKS DAYQUIL [Suspect]
     Active Substance: DEXTROMETHORPHAN HYDROBROMIDE\GUAIFENESIN

REACTIONS (2)
  - Condition aggravated [Recovered/Resolved]
  - Panic attack [Recovered/Resolved]
